FAERS Safety Report 18495193 (Version 1)
Quarter: 2020Q4

REPORT INFORMATION
  Report Type: Spontaneous
  Country: US (occurrence: US)
  Receive Date: 20201111
  Receipt Date: 20201111
  Transmission Date: 20210114
  Serious: Yes (Death, Hospitalization)
  Sender: FDA-Public Use
  Company Number: None

PATIENT
  Age: 82 Year
  Sex: Male

DRUGS (13)
  1. OXBUTYNIN, [Concomitant]
  2. ESBRIET [Suspect]
     Active Substance: PIRFENIDONE
     Indication: IDIOPATHIC PULMONARY FIBROSIS
     Dosage: ?          OTHER DOSE:3 CAPS;?
     Route: 048
     Dates: start: 20150425
  3. FLUTICASONE, [Concomitant]
  4. LISINOPRIL, [Concomitant]
  5. MUPIROCIN, [Concomitant]
  6. OMEPRAZOLE, [Concomitant]
  7. TRIAMCINOLON OIN [Concomitant]
  8. ATORVASTATIN, [Concomitant]
  9. DOXYCYL HYC, [Concomitant]
  10. NITROGLYCERN SUB, [Concomitant]
  11. METOPROL SUC ER [Concomitant]
  12. POT CITRATE, [Concomitant]
  13. AMLODIPINE, [Concomitant]

REACTIONS (1)
  - Death [None]

NARRATIVE: CASE EVENT DATE: 20201105
